FAERS Safety Report 6845315-2 (Version None)
Quarter: 2010Q3

REPORT INFORMATION
  Report Type: 
  Country: None (occurrence: None)
  Receive Date: 20100715
  Receipt Date: 20070816
  Transmission Date: 20110219
  Serious: No
  Sender: FDA-Public Use
  Company Number: US-PFIZER INC-2007070689

PATIENT
  Sex: Female

DRUGS (3)
  1. CHANTIX [Suspect]
  2. LIPITOR [Interacting]
  3. ASPIRIN [Interacting]

REACTIONS (6)
  - ABDOMINAL DISTENSION [None]
  - DRUG INTERACTION [None]
  - HEADACHE [None]
  - NAUSEA [None]
  - OEDEMA PERIPHERAL [None]
  - WEIGHT INCREASED [None]
